FAERS Safety Report 8546892-6 (Version None)
Quarter: 2012Q3

REPORT INFORMATION
  Report Type: 
  Country: None (occurrence: None)
  Receive Date: 20120727
  Receipt Date: 20120117
  Transmission Date: 20120928
  Serious: No
  Sender: FDA-Public Use
  Company Number: US-ASTRAZENECA-2012SE03293

PATIENT
  Sex: Female

DRUGS (4)
  1. SEROQUEL [Suspect]
     Indication: SLEEP DISORDER
     Route: 048
  2. SEROQUEL [Suspect]
     Indication: AGITATION
     Route: 048
  3. SEROQUEL [Suspect]
     Indication: ANXIETY
     Route: 048
  4. MULTIPLE MEDICATION [Concomitant]

REACTIONS (5)
  - THROAT TIGHTNESS [None]
  - CHOLINERGIC SYNDROME [None]
  - DYSPNOEA [None]
  - OFF LABEL USE [None]
  - DYSPHAGIA [None]
